FAERS Safety Report 24589531 (Version 1)
Quarter: 2024Q4

REPORT INFORMATION
  Report Type: Spontaneous
  Country: CN (occurrence: CN)
  Receive Date: 20241107
  Receipt Date: 20241107
  Transmission Date: 20250115
  Serious: Yes (Other)
  Sender: EISAI
  Company Number: CN-Eisai-EC-2024-177882

PATIENT
  Age: 38 Year
  Sex: Female

DRUGS (4)
  1. RABEPRAZOLE [Suspect]
     Active Substance: RABEPRAZOLE
     Indication: Helicobacter infection
     Route: 048
     Dates: start: 20240930, end: 20241013
  2. BISMUTH SUBCITRATE [Suspect]
     Active Substance: BISMUTH SUBCITRATE
     Indication: Helicobacter infection
     Route: 048
     Dates: start: 20240930, end: 20241013
  3. AMOXICILLIN [Suspect]
     Active Substance: AMOXICILLIN
     Indication: Helicobacter infection
     Route: 048
     Dates: start: 20240930, end: 20241013
  4. METRONIDAZOLE [Suspect]
     Active Substance: METRONIDAZOLE
     Indication: Helicobacter infection
     Route: 048
     Dates: start: 20240930, end: 20241013

REACTIONS (1)
  - Drug eruption [Recovered/Resolved]

NARRATIVE: CASE EVENT DATE: 20241013
